FAERS Safety Report 18852011 (Version 1)
Quarter: 2021Q1

REPORT INFORMATION
  Report Type: Spontaneous
  Country: US (occurrence: US)
  Receive Date: 20210204
  Receipt Date: 20210204
  Transmission Date: 20210420
  Serious: Yes (Hospitalization)
  Sender: FDA-Public Use
  Company Number: None

PATIENT
  Age: 70 Year
  Sex: Female

DRUGS (4)
  1. IMATINIB MES TAB 400MG [Suspect]
     Active Substance: IMATINIB MESYLATE
     Route: 048
     Dates: start: 202006
  2. METRONIDAZOLE. [Concomitant]
     Active Substance: METRONIDAZOLE
  3. CEFUROXIME. [Concomitant]
     Active Substance: CEFUROXIME
  4. ELIQUIS [Concomitant]
     Active Substance: APIXABAN

REACTIONS (6)
  - Colonic abscess [None]
  - Gait disturbance [None]
  - Dyspnoea [None]
  - Asthenia [None]
  - Tremor [None]
  - SARS-CoV-2 test positive [None]

NARRATIVE: CASE EVENT DATE: 20210126
